FAERS Safety Report 9579951 (Version 2)
Quarter: 2014Q1

REPORT INFORMATION
  Report Type: Spontaneous
  Country: GB (occurrence: None)
  Receive Date: 20130930
  Receipt Date: 20140127
  Transmission Date: 20141002
  Serious: Yes (Other)
  Sender: FDA-Public Use
  Company Number: AUR-APL-2013-07935

PATIENT
  Age: 55 Year
  Sex: Female
  Weight: 73.93 kg

DRUGS (4)
  1. SIMVASTATIN [Suspect]
     Indication: DIABETES MELLITUS
     Dosage: 40 MG ( 40 MG, 1 IN 1 D), ORAL
     Route: 048
     Dates: start: 20091016, end: 20120720
  2. SIMVASTATIN [Suspect]
     Indication: HYPERCHOLESTEROLAEMIA
     Dosage: 40 MG ( 40 MG, 1 IN 1 D), ORAL
     Route: 048
     Dates: start: 20091016, end: 20120720
  3. METFORMIN (METFORMIN) [Concomitant]
  4. RAMIPRIL ( RAMIPRIL) [Concomitant]

REACTIONS (7)
  - Anxiety [None]
  - Hypochondriasis [None]
  - Fear of disease [None]
  - Fear of death [None]
  - Middle insomnia [None]
  - Obsessive thoughts [None]
  - Disturbance in attention [None]
